FAERS Safety Report 5050474-0 (Version None)
Quarter: 2006Q3

REPORT INFORMATION
  Report Type: 
  Country: None (occurrence: None)
  Receive Date: 20060707
  Receipt Date: 20060706
  Transmission Date: 20061208
  Serious: Yes (Other)
  Sender: FDA-Public Use
  Company Number: THQ2006A00581

PATIENT
  Age: 8 Decade
  Sex: Female

DRUGS (1)
  1. ACTOS [Suspect]
     Indication: DIABETES MELLITUS
     Dosage: 30 MG  APPROX. ONE OR TWO YEARS AGO

REACTIONS (1)
  - PERICARDIAL EFFUSION [None]
